FAERS Safety Report 24210657 (Version 1)
Quarter: 2024Q3

REPORT INFORMATION
  Report Type: Spontaneous
  Country: US (occurrence: None)
  Receive Date: 20240813
  Receipt Date: 20240813
  Transmission Date: 20241016
  Serious: Yes (Death, Life-Threatening, Disabling, Other)
  Sender: Public
  Company Number: None

PATIENT
  Age: 73 Year
  Sex: Male
  Weight: 90.72 kg

DRUGS (7)
  1. LITHIUM [Suspect]
     Active Substance: LITHIUM
     Indication: Mental disorder
     Dosage: OTHER QUANTITY : 1 PILL DAILY;?FREQUENCY : DAILY;?
     Route: 048
     Dates: start: 202402, end: 202407
  2. DEPAKOTE [Suspect]
     Active Substance: DIVALPROEX SODIUM
     Indication: Mental disorder
     Dosage: DEPAKOTE? ABILIFY?? ? 150 MG LITHIUM ONCE DAILY
     Route: 048
     Dates: start: 202402, end: 202407
  3. THORAZINE [Suspect]
     Active Substance: CHLORPROMAZINE
  4. ABILIFY [Suspect]
     Active Substance: ARIPIPRAZOLE
     Dosage: DEPAKOTE? ABILIFY?? ? 150 MG LITHIUM ONCE DAILY
     Route: 048
     Dates: start: 202402, end: 202407
  5. blood pressure drugs [Concomitant]
  6. high tension drugs [Concomitant]
  7. constipation drug [Concomitant]

REACTIONS (2)
  - Agitation [None]
  - Sleep disorder [None]

NARRATIVE: CASE EVENT DATE: 20240201
